FAERS Safety Report 6762915-9 (Version None)
Quarter: 2010Q2

REPORT INFORMATION
  Report Type: 
  Country: None (occurrence: None)
  Receive Date: 20100609
  Receipt Date: 20100602
  Transmission Date: 20101027
  Serious: Yes (Life-Threatening, Hospitalization)
  Sender: FDA-Public Use
  Company Number: CL-WYE-H14585310

PATIENT
  Age: 24 Year
  Sex: Male

DRUGS (2)
  1. TIGECYCLINE [Suspect]
     Indication: SEPSIS
     Dosage: 100 MG LOADING DOSE, THEN 50 MG EVERY 12 HOURS
     Route: 042
     Dates: start: 20090406, end: 20090413
  2. TIGECYCLINE [Suspect]
     Indication: ACINETOBACTER INFECTION

REACTIONS (1)
  - STEVENS-JOHNSON SYNDROME [None]
